FAERS Safety Report 8353015-5 (Version None)
Quarter: 2012Q2

REPORT INFORMATION
  Report Type: 
  Country: None (occurrence: None)
  Receive Date: 20120511
  Receipt Date: 20120430
  Transmission Date: 20120825
  Serious: Yes (Hospitalization)
  Sender: FDA-Public Use
  Company Number: CA-BRISTOL-MYERS SQUIBB COMPANY-16558603

PATIENT
  Age: 74 Year
  Sex: Male

DRUGS (3)
  1. CHINESE HERBS [Interacting]
     Indication: NASAL CONGESTION
  2. WARFARIN SODIUM [Suspect]
     Indication: ATRIAL FIBRILLATION
     Dosage: RESTARTED WITH 21MG/WK
  3. CHINESE HERBS [Interacting]
     Indication: HEADACHE

REACTIONS (3)
  - DRUG INTERACTION [None]
  - INTERNATIONAL NORMALISED RATIO INCREASED [None]
  - MELAENA [None]
